FAERS Safety Report 21328311 (Version 1)
Quarter: 2022Q3

REPORT INFORMATION
  Report Type: Report from Study
  Country: US (occurrence: US)
  Receive Date: 20220913
  Receipt Date: 20220913
  Transmission Date: 20221027
  Serious: Yes (Other)
  Sender: FDA-Public Use
  Company Number: US-ABBVIE-22K-163-4536082-00

PATIENT
  Sex: Male

DRUGS (3)
  1. VENCLEXTA [Suspect]
     Active Substance: VENETOCLAX
     Indication: Chronic lymphocytic leukaemia
     Route: 048
     Dates: start: 202110, end: 202208
  2. VENCLEXTA [Suspect]
     Active Substance: VENETOCLAX
     Indication: Lymphocytic leukaemia
  3. IRON [Suspect]
     Active Substance: IRON
     Indication: Product used for unknown indication
     Route: 042

REACTIONS (8)
  - Anaphylactic shock [Unknown]
  - Atrial fibrillation [Unknown]
  - Atrial flutter [Unknown]
  - Illness [Unknown]
  - Malaise [Unknown]
  - Product use complaint [Unknown]
  - Feeding disorder [Unknown]
  - Unevaluable event [Unknown]
